FAERS Safety Report 5330018-6 (Version None)
Quarter: 2007Q2

REPORT INFORMATION
  Report Type: 
  Country: None (occurrence: None)
  Receive Date: 20070521
  Receipt Date: 20070514
  Transmission Date: 20071010
  Serious: Yes (Hospitalization)
  Sender: FDA-Public Use
  Company Number: B0471481A

PATIENT
  Age: 63 Year
  Sex: Male

DRUGS (7)
  1. LITHIUM CARBONATE [Suspect]
     Indication: BIPOLAR DISORDER
     Route: 048
     Dates: start: 20030101, end: 20070412
  2. ARIPIPRAZOLE [Concomitant]
     Dosage: 10MG PER DAY
     Route: 048
  3. EPILIM [Concomitant]
     Indication: CONVULSION
     Dosage: 500MG TWICE PER DAY
  4. FRUSEMIDE [Concomitant]
     Indication: LEFT VENTRICULAR FAILURE
     Dosage: 40MG PER DAY
     Route: 048
  5. OMEPRAZOLE [Concomitant]
     Dosage: 40MG PER DAY
     Route: 048
  6. POTASSIUM SULPHATE [Concomitant]
     Dosage: 200MG THREE TIMES PER DAY
     Route: 048
  7. RAMIPRIL [Concomitant]
     Indication: LEFT VENTRICULAR FAILURE
     Dosage: 7.5MG PER DAY
     Route: 048

REACTIONS (2)
  - NEPHROGENIC DIABETES INSIPIDUS [None]
  - RENAL FAILURE ACUTE [None]
